FAERS Safety Report 12707830 (Version 5)
Quarter: 2018Q2

REPORT INFORMATION
  Report Type: Report from Study
  Country: ES (occurrence: ES)
  Receive Date: 20160901
  Receipt Date: 20180416
  Transmission Date: 20180711
  Serious: Yes (Hospitalization)
  Sender: FDA-Public Use
  Company Number: ES-SA-2016SA157869

PATIENT
  Age: 43 Year
  Sex: Male
  Weight: 75 kg

DRUGS (1)
  1. LEMTRADA [Suspect]
     Active Substance: ALEMTUZUMAB
     Indication: MULTIPLE SCLEROSIS RELAPSE
     Route: 041
     Dates: start: 20160418, end: 20160422

REACTIONS (4)
  - Back pain [Recovered/Resolved]
  - Herpes zoster disseminated [Recovered/Resolved with Sequelae]
  - Rash generalised [Recovered/Resolved]
  - Blastocystis infection [Recovered/Resolved]

NARRATIVE: CASE EVENT DATE: 201604
